FAERS Safety Report 17171074 (Version 1)
Quarter: 2019Q4

REPORT INFORMATION
  Report Type: Spontaneous
  Country: US (occurrence: US)
  Receive Date: 20191218
  Receipt Date: 20191218
  Transmission Date: 20200122
  Serious: Yes (Death, Hospitalization)
  Sender: FDA-Public Use
  Company Number: US-UNITED THERAPEUTICS-UNT-2019-020964

PATIENT
  Age: 64 Year
  Sex: Female
  Weight: 67.12 kg

DRUGS (1)
  1. TYVASO [Suspect]
     Active Substance: TREPROSTINIL
     Indication: PULMONARY ARTERIAL HYPERTENSION
     Dosage: 60-120 ?G, QID
     Dates: start: 20191213

REACTIONS (4)
  - Fluid overload [Unknown]
  - Off label use [Unknown]
  - Death [Fatal]
  - Hypoxia [Unknown]

NARRATIVE: CASE EVENT DATE: 20191213
